FAERS Safety Report 6623903-6 (Version None)
Quarter: 2010Q1

REPORT INFORMATION
  Report Type: 
  Country: None (occurrence: None)
  Receive Date: 20100304
  Receipt Date: 20100218
  Transmission Date: 20100710
  Serious: Yes (Other)
  Sender: FDA-Public Use
  Company Number: 2010-0606

PATIENT
  Age: 74 Year
  Sex: Female

DRUGS (1)
  1. DYSPORT [Suspect]
     Indication: BLEPHAROSPASM
     Dosage: 120 UNITS (120 UNITS, SINGLE CYCLE), PARENTERAL
     Route: 051

REACTIONS (8)
  - BOTULISM [None]
  - DIPLOPIA [None]
  - ELECTROMYOGRAM ABNORMAL [None]
  - EYE MOVEMENT DISORDER [None]
  - EYELID PTOSIS [None]
  - FATIGUE [None]
  - IATROGENIC INJURY [None]
  - VISUAL IMPAIRMENT [None]
